FAERS Safety Report 9460198 (Version 1)
Quarter: 2013Q3

REPORT INFORMATION
  Report Type: Spontaneous
  Country: AR (occurrence: AR)
  Receive Date: 20130815
  Receipt Date: 20130815
  Transmission Date: 20140515
  Serious: Yes (Disabling)
  Sender: FDA-Public Use
  Company Number: AR-ACTELION-A-CH2013-87104

PATIENT
  Age: 70 Year
  Sex: Female

DRUGS (9)
  1. ZAVESCA [Suspect]
     Indication: NIEMANN-PICK DISEASE
     Dosage: 600 MG, OD
     Route: 048
     Dates: start: 20130729
  2. ZAVESCA [Suspect]
     Dosage: 400 MG, OD
     Route: 048
     Dates: start: 201305
  3. ZAVESCA [Suspect]
     Dosage: 400 MG, OD
     Route: 048
  4. ZAVESCA [Suspect]
     Dosage: 300 MG, OD
     Route: 048
  5. PRAMIPEXOLE [Concomitant]
  6. LEVOTIROXINA [Concomitant]
  7. PYRIDOSTIGMINE [Concomitant]
  8. METFORMIN [Concomitant]
  9. LEVODOPA/CARBIDOPA [Concomitant]

REACTIONS (12)
  - Diarrhoea [Recovered/Resolved]
  - Myoclonus [Unknown]
  - Supranuclear palsy [Unknown]
  - Gait disturbance [Unknown]
  - Dysphonia [Unknown]
  - Condition aggravated [Unknown]
  - Tremor [Unknown]
  - Sight disability [Unknown]
  - Walking disability [Unknown]
  - Asthenia [Unknown]
  - Fatigue [Unknown]
  - Weight decreased [Unknown]
